FAERS Safety Report 9132972 (Version 1)
Quarter: 2013Q1

REPORT INFORMATION
  Report Type: Spontaneous
  Country: US (occurrence: US)
  Receive Date: 20130301
  Receipt Date: 20130301
  Transmission Date: 20140127
  Serious: Yes (Other)
  Sender: FDA-Public Use
  Company Number: PHHY2013US019693

PATIENT
  Age: 61 Year
  Sex: Male

DRUGS (1)
  1. BUFFERIN [Suspect]
     Indication: MIGRAINE
     Route: 048
     Dates: start: 1983

REACTIONS (2)
  - Sinusitis [Recovered/Resolved]
  - Drug ineffective [Not Recovered/Not Resolved]
